FAERS Safety Report 8515319-2 (Version None)
Quarter: 2012Q3

REPORT INFORMATION
  Report Type: 
  Country: None (occurrence: None)
  Receive Date: 20120717
  Receipt Date: 20120712
  Transmission Date: 20120928
  Serious: Yes (Death, Life-Threatening)
  Sender: FDA-Public Use
  Company Number: FR-BAYER-2012-070345

PATIENT
  Sex: Male

DRUGS (4)
  1. CORTICOSTEROIDS [Concomitant]
  2. CIPROFLOXACIN [Suspect]
  3. FLUCONAZOLE [Suspect]
  4. PIPERACILLIN AND TAZOBACTAM [Concomitant]

REACTIONS (4)
  - MULTI-ORGAN FAILURE [None]
  - BRONCHOPULMONARY ASPERGILLOSIS [None]
  - SYSTEMIC CANDIDA [None]
  - PNEUMOCYSTIS JIROVECI PNEUMONIA [None]
